FAERS Safety Report 21732859 (Version 1)
Quarter: 2022Q4

REPORT INFORMATION
  Report Type: Report from Study
  Country: PH (occurrence: PH)
  Receive Date: 20221215
  Receipt Date: 20221215
  Transmission Date: 20230113
  Serious: Yes (Death)
  Sender: FDA-Public Use
  Company Number: PH-002147023-NVSC2022PH290014

PATIENT
  Age: 58 Year
  Sex: Female

DRUGS (5)
  1. RIBOCICLIB [Suspect]
     Active Substance: RIBOCICLIB
     Indication: Product used for unknown indication
     Dosage: 200 MG, OTHER (AD)
     Route: 048
  2. FEMARA [Suspect]
     Active Substance: LETROZOLE
     Indication: Product used for unknown indication
     Dosage: 2.5 MG, OTHER (AD)
     Route: 048
  3. OMEPRAZOLE [Concomitant]
     Active Substance: OMEPRAZOLE
     Indication: Antacid therapy
     Dosage: 40 MG, OTHER (TAKE 1 CAPSULE 30 MINUTES BEFORE BREAKFAST FOR 5 DAYS)
     Route: 048
  4. METOCLOPRAMIDE [Concomitant]
     Active Substance: METOCLOPRAMIDE
     Indication: Vomiting
     Dosage: 10 MG, OTHER (TAKE 1 TABLET AFTER BREAKFAST, LUNCH AND DINNER FOR 3 CONSECUTIVE DAYS) (ANTIVOMITING)
     Route: 048
  5. DEXAMETHASONE [Concomitant]
     Active Substance: DEXAMETHASONE
     Indication: Product used for unknown indication
     Dosage: 4 MG, OTHER (TAKE 3 TABLETS AFTER DINNER AT 6 PM AND 3 TABLETS AFTER BREAKFAST AT 6 AM)
     Route: 048

REACTIONS (1)
  - Death [Fatal]
